FAERS Safety Report 25529646 (Version 1)
Quarter: 2025Q3

REPORT INFORMATION
  Report Type: Report from Study
  Country: IN (occurrence: IN)
  Receive Date: 20250708
  Receipt Date: 20250708
  Transmission Date: 20251020
  Serious: Yes (Hospitalization, Other)
  Sender: ROCHE
  Company Number: IN-ROCHE-10000327465

PATIENT

DRUGS (5)
  1. TOCILIZUMAB [Suspect]
     Active Substance: TOCILIZUMAB
     Indication: Juvenile idiopathic arthritis
     Dosage: {30 KG: 12 MG PER KG?} 30 KG: 8 MG PER KG
     Route: 042
  2. ETANERCEPT [Suspect]
     Active Substance: ETANERCEPT
     Indication: Juvenile idiopathic arthritis
     Route: 058
  3. ADALIMUMAB [Suspect]
     Active Substance: ADALIMUMAB
     Indication: Juvenile idiopathic arthritis
     Route: 058
  4. METHOTREXATE [Concomitant]
     Active Substance: METHOTREXATE
  5. SULFASALAZINE [Concomitant]
     Active Substance: SULFASALAZINE

REACTIONS (19)
  - Gastrointestinal disorder [Unknown]
  - Respiratory tract infection [Unknown]
  - Tuberculosis [Unknown]
  - Scabies [Unknown]
  - Injection site reaction [Unknown]
  - Rash [Unknown]
  - Anaphylactic reaction [Unknown]
  - Leukopenia [Unknown]
  - Thrombocytopenia [Unknown]
  - Anaemia [Unknown]
  - Hypertransaminasaemia [Unknown]
  - Pyrexia [Unknown]
  - Sepsis [Unknown]
  - Dengue fever [Unknown]
  - Gastroenteritis [Unknown]
  - Typhoid fever [Unknown]
  - Varicella [Unknown]
  - Pneumonia [Unknown]
  - Treatment failure [Unknown]
